FAERS Safety Report 5546089-8 (Version None)
Quarter: 2007Q4

REPORT INFORMATION
  Report Type: 
  Country: None (occurrence: None)
  Receive Date: 20071211
  Receipt Date: 20071003
  Transmission Date: 20080405
  Serious: No
  Sender: FDA-Public Use
  Company Number: US-BRISTOL-MYERS SQUIBB COMPANY-13927645

PATIENT
  Age: 61 Year
  Sex: Male

DRUGS (3)
  1. EMSAM [Suspect]
     Route: 062
  2. RISPERDAL [Concomitant]
  3. CLONIDINE [Concomitant]

REACTIONS (2)
  - ANXIETY [None]
  - PRURITUS GENERALISED [None]
